FAERS Safety Report 4429116-0 (Version None)
Quarter: 2004Q3

REPORT INFORMATION
  Report Type: 
  Country: None (occurrence: None)
  Receive Date: 20040726
  Receipt Date: 20040312
  Transmission Date: 20050211
  Serious: No
  Sender: FDA-Public Use
  Company Number: USA040361438

PATIENT
  Age: 80 Year
  Sex: Male

DRUGS (1)
  1. FORTEO [Suspect]
     Dates: start: 20040101, end: 20040301

REACTIONS (4)
  - BLOOD CREATININE INCREASED [None]
  - BONE PAIN [None]
  - DIFFICULTY IN WALKING [None]
  - MYALGIA [None]
